FAERS Safety Report 12202513 (Version 1)
Quarter: 2016Q1

REPORT INFORMATION
  Report Type: Other
  Country: BR (occurrence: BR)
  Receive Date: 20160322
  Receipt Date: 20160322
  Transmission Date: 20160526
  Serious: Yes (Other)
  Sender: FDA-Public Use
  Company Number: BR-COL_22340_2016

PATIENT
  Sex: Female

DRUGS (2)
  1. COLGATE MAX CAVITY PROTECTION SUGAR ACID NEUTRALIZER TP [Suspect]
     Active Substance: ARGININE\CALCIUM CARBONATE\SODIUM MONOFLUOROPHOSPHATE
     Indication: DENTAL DISORDER PROPHYLAXIS
     Dosage: NI/ONCE/
     Route: 048
     Dates: start: 20160219, end: 20160219
  2. COLGATE MAX CAVITY PROTECTION SUGAR ACID NEUTRALIZER TP [Suspect]
     Active Substance: ARGININE\CALCIUM CARBONATE\SODIUM MONOFLUOROPHOSPHATE
     Dosage: NI/THREE TIMES/
     Route: 048
     Dates: start: 20160218, end: 20160218

REACTIONS (8)
  - Oral bacterial infection [Unknown]
  - Gingival disorder [Recovered/Resolved]
  - Gingival pain [Unknown]
  - Stomatitis [Recovered/Resolved]
  - Oral mucosal erythema [Recovered/Resolved]
  - Gingival swelling [Unknown]
  - Tooth disorder [Unknown]
  - Abscess [Unknown]

NARRATIVE: CASE EVENT DATE: 2016
